FAERS Safety Report 21310674 (Version 1)
Quarter: 2022Q3

REPORT INFORMATION
  Report Type: Spontaneous
  Country: US (occurrence: US)
  Receive Date: 20220909
  Receipt Date: 20220909
  Transmission Date: 20221027
  Serious: Yes (Hospitalization)
  Sender: FDA-Public Use
  Company Number: US-BIOCODEX2-202000215

PATIENT
  Age: 12 Year
  Sex: Male
  Weight: 27 kg

DRUGS (7)
  1. DIACOMIT [Suspect]
     Active Substance: STIRIPENTOL
     Indication: Epilepsy
     Dosage: 250MG TWICE DAILY
     Route: 065
     Dates: start: 20190509
  2. DIACOMIT [Suspect]
     Active Substance: STIRIPENTOL
     Indication: Epilepsy
     Dosage: 500MG TWICE DAILY
     Route: 065
     Dates: start: 20200518
  3. DIACOMIT [Suspect]
     Active Substance: STIRIPENTOL
     Indication: Epilepsy
     Dosage: 250MG TWICE DAILY
     Route: 065
  4. DIACOMIT [Suspect]
     Active Substance: STIRIPENTOL
     Indication: Epilepsy
     Dosage: TAKE 1 CAPSULE BY MOUTH TWICE DAILY
     Route: 048
     Dates: start: 20220730
  5. LORAZEPAM [Concomitant]
     Active Substance: LORAZEPAM
     Indication: Product used for unknown indication
     Route: 065
  6. CLONAZEPAM [Concomitant]
     Active Substance: CLONAZEPAM
     Indication: Product used for unknown indication
     Route: 065
  7. TRILEPTAL [Concomitant]
     Active Substance: OXCARBAZEPINE
     Indication: Product used for unknown indication
     Route: 065

REACTIONS (8)
  - Vomiting [Unknown]
  - Influenza [Unknown]
  - Dehydration [Unknown]
  - Dyspepsia [Unknown]
  - Complication associated with device [Unknown]
  - Product use in unapproved indication [Unknown]
  - Product dose omission issue [Unknown]
  - Malaise [Unknown]
